FAERS Safety Report 4876213-1 (Version None)
Quarter: 2006Q1

REPORT INFORMATION
  Report Type: 
  Country: None (occurrence: None)
  Receive Date: 20060110
  Receipt Date: 20051229
  Transmission Date: 20060701
  Serious: Yes (Hospitalization)
  Sender: FDA-Public Use
  Company Number: FR-BRISTOL-MYERS SQUIBB COMPANY-13233002

PATIENT
  Age: 59 Year
  Sex: Female

DRUGS (6)
  1. GLUCOPHAGE [Suspect]
     Indication: DIABETES MELLITUS
     Route: 048
  2. TIAPRIDAL [Suspect]
     Route: 048
  3. DEPAKOTE [Suspect]
     Indication: PSYCHOTIC DISORDER
     Route: 048
     Dates: start: 20050604
  4. LANTUS [Suspect]
     Indication: DIABETES MELLITUS
     Route: 058
  5. PARACETAMOL [Concomitant]
  6. DEPAMIDE [Concomitant]
     Indication: PSYCHOTIC DISORDER
     Dates: end: 20050604

REACTIONS (1)
  - HYPONATRAEMIA [None]
